FAERS Safety Report 7139210-1 (Version None)
Quarter: 2010Q4

REPORT INFORMATION
  Report Type: 
  Country: None (occurrence: None)
  Receive Date: 20101202
  Receipt Date: 20101202
  Transmission Date: 20110411
  Serious: Yes (Hospitalization)
  Sender: FDA-Public Use
  Company Number: None

PATIENT
  Age: 44 Year
  Sex: Female

DRUGS (12)
  1. XIFAXAN [Suspect]
     Indication: HEPATIC ENCEPHALOPATHY PROPHYLAXIS
     Dosage: DAILY PO
     Route: 048
  2. SPIRONOLACTONE [Concomitant]
  3. FUROSEMIDE [Concomitant]
  4. QUESTRAN [Concomitant]
  5. DIPHENHYDRAMINE [Concomitant]
  6. LACTULOSE [Concomitant]
  7. LEVOTHYROXINE [Concomitant]
  8. OMEPRAZOLE [Concomitant]
  9. PREDNISONE [Concomitant]
  10. PROPRANOLOL [Concomitant]
  11. TRIAMCINOLONE [Concomitant]
  12. URSODIOL [Concomitant]

REACTIONS (4)
  - HYPERSENSITIVITY [None]
  - PNEUMONIA [None]
  - PYREXIA [None]
  - URTICARIA [None]
